FAERS Safety Report 10456417 (Version 1)
Quarter: 2014Q3

REPORT INFORMATION
  Report Type: Report from Study
  Country: US (occurrence: US)
  Receive Date: 20140916
  Receipt Date: 20140916
  Transmission Date: 20150326
  Serious: Yes (Death)
  Sender: FDA-Public Use
  Company Number: US-SA-2014SA124582

PATIENT
  Age: 67 Year

DRUGS (5)
  1. MELPHALAN [Suspect]
     Active Substance: MELPHALAN
     Indication: BONE MARROW CONDITIONING REGIMEN
     Dosage: ON DAY -2 OVER 30 MINUTES
     Route: 041
  2. ALEMTUZUMAB [Suspect]
     Active Substance: ALEMTUZUMAB
     Indication: BONE MARROW CONDITIONING REGIMEN
     Dosage: ON DAYS -7 TO -3 OVER 1 HOUR
     Route: 042
  3. TACROLIMUS. [Concomitant]
     Active Substance: TACROLIMUS
     Route: 042
  4. TACROLIMUS. [Concomitant]
     Active Substance: TACROLIMUS
     Route: 048
  5. CLOFARABINE [Suspect]
     Active Substance: CLOFARABINE
     Indication: BONE MARROW CONDITIONING REGIMEN
     Dosage: ON DAYS -7 TO -3
     Route: 041

REACTIONS (3)
  - Pneumonia [Fatal]
  - Arrhythmia [Fatal]
  - Off label use [Unknown]
